FAERS Safety Report 17029272 (Version 1)
Quarter: 2019Q4

REPORT INFORMATION
  Report Type: Spontaneous
  Country: GB (occurrence: GB)
  Receive Date: 20191114
  Receipt Date: 20191114
  Transmission Date: 20200122
  Serious: Yes (Hospitalization, Other)
  Sender: FDA-Public Use
  Company Number: GB-AMGEN-GBRSP2019186228

PATIENT
  Age: 17 Year
  Sex: Male
  Weight: 43.6 kg

DRUGS (6)
  1. CALCICHEW D3 [Concomitant]
     Active Substance: CALCIUM\CHOLECALCIFEROL
     Indication: PROPHYLAXIS
     Dosage: UNK UNK, QD
  2. XGEVA [Suspect]
     Active Substance: DENOSUMAB
     Indication: ANEURYSMAL BONE CYST
     Dosage: 70 MILLIGRAM PER SQUARE METRE, FOUR MONTH
     Route: 058
  3. XGEVA [Suspect]
     Active Substance: DENOSUMAB
     Dosage: 98 MILLIGRAM
     Route: 058
     Dates: start: 20170331, end: 20190426
  4. CALCICHEW [Concomitant]
     Active Substance: CALCIUM CARBONATE
     Indication: HYPOCALCAEMIA
  5. XGEVA [Suspect]
     Active Substance: DENOSUMAB
     Dosage: 70 MILLIGRAM PER SQUARE METRE,Q6MO
     Route: 058
  6. XGEVA [Suspect]
     Active Substance: DENOSUMAB
     Dosage: 70 MILLIGRAM PER SQUARE METRE, QWK
     Route: 058
     Dates: start: 20170331

REACTIONS (3)
  - Acute kidney injury [Not Recovered/Not Resolved]
  - Hypertension [Not Recovered/Not Resolved]
  - Hypercalcaemia [Not Recovered/Not Resolved]

NARRATIVE: CASE EVENT DATE: 20191018
